FAERS Safety Report 5883765-1 (Version None)
Quarter: 2008Q3

REPORT INFORMATION
  Report Type: 
  Country: None (occurrence: None)
  Receive Date: 20080911
  Receipt Date: 20080827
  Transmission Date: 20090109
  Serious: Yes (Hospitalization)
  Sender: FDA-Public Use
  Company Number: TNZFR200800142

PATIENT
  Age: 63 Year
  Sex: Female
  Weight: 98 kg

DRUGS (4)
  1. INNOHEP [Suspect]
     Indication: PULMONARY EMBOLISM
     Dosage: 18000 IU, DAILY, SUBCUTANEOUS
     Route: 058
  2. LOVENOX [Suspect]
     Indication: THROMBOSIS PROPHYLAXIS
     Dosage: 4000 IU, SUBCUTANEOUS
     Route: 058
     Dates: start: 20080803, end: 20080806
  3. CALCIPARINE [Suspect]
     Indication: THROMBOSIS PROPHYLAXIS
     Dosage: 6000 IU, SBUCUTANEOUS
     Route: 058
     Dates: start: 20080801, end: 20080803
  4. HEPARINE CHOAY (HEPARIN SODIUM) [Suspect]
     Indication: HAEMODIALYSIS
     Dosage: 4000 IU
     Dates: start: 20080729, end: 20080731

REACTIONS (9)
  - DEEP VEIN THROMBOSIS [None]
  - DIARRHOEA [None]
  - HEPARIN-INDUCED THROMBOCYTOPENIA [None]
  - INTESTINAL ISCHAEMIA [None]
  - MEGACOLON [None]
  - PULMONARY EMBOLISM [None]
  - PULMONARY HYPERTENSION [None]
  - PULMONARY INFARCTION [None]
  - RESPIRATORY DISTRESS [None]
